FAERS Safety Report 25628301 (Version 1)
Quarter: 2025Q3

REPORT INFORMATION
  Report Type: Spontaneous
  Country: JP (occurrence: JP)
  Receive Date: 20250731
  Receipt Date: 20250731
  Transmission Date: 20251021
  Serious: Yes (Death, Other)
  Sender: OTSUKA
  Company Number: JP-MMM-Otsuka-BQ0N63H5

PATIENT
  Age: 69 Year
  Sex: Male

DRUGS (2)
  1. REXULTI [Suspect]
     Active Substance: BREXPIPRAZOLE
     Indication: Dementia Alzheimer^s type
     Dosage: 0.5 MG/DAY
     Route: 048
     Dates: start: 20250711
  2. REXULTI [Suspect]
     Active Substance: BREXPIPRAZOLE
     Indication: Anger

REACTIONS (1)
  - Neoplasm malignant [Fatal]
